FAERS Safety Report 5077641-4 (Version None)
Quarter: 2006Q3

REPORT INFORMATION
  Report Type: 
  Country: None (occurrence: None)
  Receive Date: 20060810
  Receipt Date: 20060517
  Transmission Date: 20061208
  Serious: No
  Sender: FDA-Public Use
  Company Number: US-GLAXOSMITHKLINE-A0606068A

PATIENT
  Age: 15 Year
  Sex: Male

DRUGS (2)
  1. PAXIL [Suspect]
     Dosage: 10MG PER DAY
     Route: 048
  2. PAROXETINE HCL [Suspect]
     Dosage: 10MG PER DAY
     Route: 048

REACTIONS (1)
  - GROWTH RETARDATION [None]
